FAERS Safety Report 25863252 (Version 1)
Quarter: 2025Q3

REPORT INFORMATION
  Report Type: Report from Study
  Country: EU (occurrence: EU)
  Receive Date: 20250930
  Receipt Date: 20250930
  Transmission Date: 20251021
  Serious: Yes (Hospitalization, Other)
  Sender: ABBVIE
  Company Number: EU-ABBVIE-6479974

PATIENT
  Age: 78 Year
  Sex: Female

DRUGS (1)
  1. RINVOQ [Suspect]
     Active Substance: UPADACITINIB
     Indication: Product used for unknown indication
     Route: 048

REACTIONS (4)
  - Spinal stenosis [Recovering/Resolving]
  - Spinal pain [Unknown]
  - Lumbar spinal stenosis [Unknown]
  - Spinal stenosis [Recovering/Resolving]

NARRATIVE: CASE EVENT DATE: 20250618
